FAERS Safety Report 9816850 (Version 1)
Quarter: 2014Q1

REPORT INFORMATION
  Report Type: Spontaneous
  Country: US (occurrence: US)
  Receive Date: 20140114
  Receipt Date: 20140114
  Transmission Date: 20141002
  Serious: No
  Sender: FDA-Public Use
  Company Number: US-ENDO PHARMACEUTICALS INC.-ENDC20130024

PATIENT
  Age: 53 Year
  Sex: Male

DRUGS (1)
  1. ENDOCET 10MG/325MG [Suspect]
     Indication: PAIN
     Dosage: 60/1950MG
     Route: 048
     Dates: start: 1985

REACTIONS (1)
  - Drug screen negative [Unknown]
